FAERS Safety Report 21035211 (Version 2)
Quarter: 2022Q3

REPORT INFORMATION
  Report Type: Report from Study
  Country: CA (occurrence: CA)
  Receive Date: 20220701
  Receipt Date: 20220712
  Transmission Date: 20221027
  Serious: Yes (Other)
  Sender: FDA-Public Use
  Company Number: CA-BRISTOL-MYERS SQUIBB COMPANY-2022-063106

PATIENT
  Age: 58 Year
  Sex: Female
  Weight: 88.63 kg

DRUGS (16)
  1. ORENCIA [Suspect]
     Active Substance: ABATACEPT
     Indication: Rheumatoid arthritis
     Dosage: 4 WEEKS
     Route: 042
     Dates: start: 20180129
  2. HYDROXYCHLOROQUINE SULFATE [Concomitant]
     Active Substance: HYDROXYCHLOROQUINE SULFATE
  3. LEUCOVORIN [Concomitant]
     Active Substance: LEUCOVORIN
  4. METHOTREXATE SODIUM [Concomitant]
     Active Substance: METHOTREXATE SODIUM
  5. VITAMIN B12 [Concomitant]
     Active Substance: CYANOCOBALAMIN
  6. ESTRADIOL [Concomitant]
     Active Substance: ESTRADIOL
  7. PROMETRIUM [Concomitant]
     Active Substance: PROGESTERONE
  8. BISOPROLOL [Concomitant]
     Active Substance: BISOPROLOL
  9. DEXILANT [Concomitant]
     Active Substance: DEXLANSOPRAZOLE
  10. ACETAMINOPHEN [Concomitant]
     Active Substance: ACETAMINOPHEN
  11. BETAMETHASONE VALERATE [Concomitant]
     Active Substance: BETAMETHASONE VALERATE
  12. NASONEX [Concomitant]
     Active Substance: MOMETASONE FUROATE
  13. PREDNISONE [Concomitant]
     Active Substance: PREDNISONE
  14. MAVIK [Concomitant]
     Active Substance: TRANDOLAPRIL
  15. AMITRIPTYLINE [Concomitant]
     Active Substance: AMITRIPTYLINE
  16. PREGABALIN [Concomitant]
     Active Substance: PREGABALIN

REACTIONS (3)
  - Pericarditis [Not Recovered/Not Resolved]
  - Chest pain [Recovering/Resolving]
  - Dyspnoea [Not Recovered/Not Resolved]

NARRATIVE: CASE EVENT DATE: 20220601
